FAERS Safety Report 7551141-1 (Version None)
Quarter: 2011Q2

REPORT INFORMATION
  Report Type: 
  Country: None (occurrence: None)
  Receive Date: 20110609
  Receipt Date: 20110524
  Transmission Date: 20111010
  Serious: Yes (Life-Threatening, Hospitalization, Other)
  Sender: FDA-Public Use
  Company Number: 2011MA006455

PATIENT
  Age: 18 Month
  Sex: Male
  Weight: 11 kg

DRUGS (1)
  1. FERROUS SUL ELX [Suspect]
     Indication: ACCIDENTAL EXPOSURE
     Dosage: 1625 MG;PO
     Route: 048

REACTIONS (14)
  - LOSS OF CONSCIOUSNESS [None]
  - TOXICITY TO VARIOUS AGENTS [None]
  - ORGAN FAILURE [None]
  - VOMITING [None]
  - PROTHROMBIN TIME PROLONGED [None]
  - ACCIDENTAL DRUG INTAKE BY CHILD [None]
  - ALANINE AMINOTRANSFERASE INCREASED [None]
  - COAGULOPATHY [None]
  - DIARRHOEA [None]
  - CONTINUOUS HAEMODIAFILTRATION [None]
  - INTESTINAL DILATATION [None]
  - LIPASE INCREASED [None]
  - ACCIDENTAL OVERDOSE [None]
  - FEEDING DISORDER [None]
